FAERS Safety Report 18394435 (Version 2)
Quarter: 2020Q4

REPORT INFORMATION
  Report Type: Spontaneous
  Country: FR (occurrence: FR)
  Receive Date: 20201016
  Receipt Date: 20201125
  Transmission Date: 20210114
  Serious: Yes (Other)
  Sender: FDA-Public Use
  Company Number: FR-BAUSCH-BL-2020-028341

PATIENT
  Age: 78 Year
  Sex: Female

DRUGS (5)
  1. CARTEOL LP 1% COLLYRE A LIBERATION PROLONGEE EN RECIPIENT UNIDOSE [Suspect]
     Active Substance: CARTEOLOL HYDROCHLORIDE
     Indication: GLAUCOMA
     Dosage: 1 DROP IN BOTH EYES IN THE MORNING
     Route: 047
     Dates: start: 202006, end: 20201010
  2. GELTIM [Suspect]
     Active Substance: TIMOLOL MALEATE
     Indication: GLAUCOMA
     Dosage: 1 DROP IN EACH EYE
     Route: 047
     Dates: start: 201811, end: 202006
  3. THEALOSE [Concomitant]
     Active Substance: HYALURONATE SODIUM\TREHALOSE
     Indication: POSTOPERATIVE CARE
     Dosage: 1 DROP IN EACH EYE. PRESCRIBED FOR 30 DAYS
     Route: 047
     Dates: start: 202010
  4. TOBRADEX [Concomitant]
     Active Substance: DEXAMETHASONE\TOBRAMYCIN
     Indication: POSTOPERATIVE CARE
     Dosage: 1 DROP THREE TIMES PER DAY FOR 10 DAYS THEN 1 DROP TWICE PER DAY FOR 25 DAYS
     Route: 047
     Dates: start: 202010
  5. INDOCOLLYRE 0.1% COLLYRE [Suspect]
     Active Substance: INDOMETHACIN
     Indication: POSTOPERATIVE CARE
     Dosage: 1 DROP IN BOTH EYES, PRESCRIBED FOR 25 DAYS
     Route: 047
     Dates: start: 202010

REACTIONS (13)
  - Psoriasis [Recovering/Resolving]
  - Vaginal polyp [Unknown]
  - Eye irritation [Recovered/Resolved]
  - Skin fissures [Recovered/Resolved]
  - Dyspnoea [Not Recovered/Not Resolved]
  - Eyelid irritation [Recovered/Resolved]
  - Fatigue [Recovering/Resolving]
  - Rhinorrhoea [Recovering/Resolving]
  - Prescribed underdose [Unknown]
  - Ocular hyperaemia [Recovered/Resolved]
  - Heart rate decreased [Recovered/Resolved]
  - Condition aggravated [Recovering/Resolving]
  - Eye pruritus [Unknown]

NARRATIVE: CASE EVENT DATE: 202010
